FAERS Safety Report 23783269 (Version 1)
Quarter: 2024Q2

REPORT INFORMATION
  Report Type: Spontaneous
  Country: US (occurrence: US)
  Receive Date: 20240425
  Receipt Date: 20240425
  Transmission Date: 20240716
  Serious: Yes (Other)
  Sender: FDA-Public Use
  Company Number: US-AUROBINDO-AUR-APL-2024-018885

PATIENT
  Age: 66 Year
  Sex: Male

DRUGS (1)
  1. TESTOSTERONE [Suspect]
     Active Substance: TESTOSTERONE
     Indication: Product used for unknown indication
     Dosage: UNK PELLES (IN HIS BUTTOCKS WHICH HE STATED WERE IMPLANTED 3 WEEKS PRIOR TO PRESENTATION)
     Route: 058

REACTIONS (2)
  - Myocardial infarction [Unknown]
  - Polycythaemia [Unknown]
